FAERS Safety Report 24006307 (Version 1)
Quarter: 2024Q2

REPORT INFORMATION
  Report Type: Spontaneous
  Country: US (occurrence: US)
  Receive Date: 20240624
  Receipt Date: 20240624
  Transmission Date: 20240715
  Serious: Yes (Death, Hospitalization, Disabling, Other)
  Sender: FDA-Public Use
  Company Number: US-TORRENT-00013631

PATIENT
  Age: 9 Year
  Sex: Female

DRUGS (4)
  1. SILDENAFIL [Suspect]
     Active Substance: SILDENAFIL
     Indication: Interstitial lung disease
     Dosage: UNKNOWN
     Route: 065
  2. TADALAFIL [Suspect]
     Active Substance: TADALAFIL
     Indication: Right ventricular hypertension
     Dosage: UNKNOWN
     Route: 065
  3. AMBRISENTAN [Suspect]
     Active Substance: AMBRISENTAN
     Indication: Right ventricular hypertension
     Dosage: UNKNOWN
     Route: 065
  4. AMLODIPINE [Suspect]
     Active Substance: AMLODIPINE BESYLATE
     Indication: Right ventricular hypertension
     Dosage: UNKNOWN
     Route: 065

REACTIONS (6)
  - Respiratory failure [Fatal]
  - Disease progression [Fatal]
  - Treatment failure [Fatal]
  - Right ventricular hypertension [Fatal]
  - Right ventricular failure [Fatal]
  - Therapy partial responder [Unknown]
